FAERS Safety Report 7531453-8 (Version None)
Quarter: 2011Q2

REPORT INFORMATION
  Report Type: 
  Country: None (occurrence: None)
  Receive Date: 20110608
  Receipt Date: 20110607
  Transmission Date: 20111010
  Serious: Yes (Death)
  Sender: FDA-Public Use
  Company Number: US-BRISTOL-MYERS SQUIBB COMPANY-15488547

PATIENT
  Age: 59 Year
  Sex: Male
  Weight: 113 kg

DRUGS (29)
  1. PROPOFOL [Concomitant]
  2. SODIUM CHLORIDE [Concomitant]
  3. PACLITAXEL [Suspect]
     Indication: LUNG NEOPLASM MALIGNANT
     Dosage: OVER 1-3 HOURS ON DAY 1OF 21 DAY CYCLE
     Route: 042
     Dates: start: 20110111
  4. PEPCID [Concomitant]
     Indication: PREMEDICATION
  5. CHONDROITIN [Concomitant]
     Indication: ARTHRITIS
  6. MULTI-VITAMIN [Concomitant]
  7. MORPHINE SULFATE [Concomitant]
     Indication: PAIN
     Dosage: TAB
  8. PLAVIX [Concomitant]
  9. GLUCOSAMINE [Concomitant]
     Indication: ARTHRITIS
  10. ZOCOR [Concomitant]
  11. CARBOPLATIN [Suspect]
     Indication: LUNG NEOPLASM MALIGNANT
     Dosage: 1DF:6AUC
     Route: 042
     Dates: start: 20110111
  12. NORVASC [Concomitant]
     Indication: BLOOD PRESSURE
  13. COZAAR [Concomitant]
     Indication: BLOOD PRESSURE
  14. ASPIRIN [Concomitant]
  15. SPIRIVA [Concomitant]
     Indication: CHRONIC OBSTRUCTIVE PULMONARY DISEASE
  16. NOREPINEPHRINE BITARTRATE [Concomitant]
  17. NITROGLYCERIN [Concomitant]
  18. DEXAMETHASONE [Concomitant]
     Indication: PREMEDICATION
  19. BENADRYL [Concomitant]
     Indication: PREMEDICATION
  20. LOPRESSOR [Concomitant]
     Indication: BLOOD PRESSURE
  21. COMBIVENT [Concomitant]
     Indication: CHRONIC OBSTRUCTIVE PULMONARY DISEASE
     Dosage: QD
  22. ALOXI [Concomitant]
     Indication: PREMEDICATION
  23. NEXIUM [Concomitant]
     Indication: GASTROOESOPHAGEAL REFLUX DISEASE
  24. MULTIPLE VITAMIN [Concomitant]
  25. PROTONIX [Concomitant]
  26. ERBITUX [Suspect]
     Indication: LUNG NEOPLASM MALIGNANT
     Dosage: 1 OF 1 CYCLE,250 MG/M2 WEEKLY ROUTE: IV PORT
     Route: 042
     Dates: start: 20110111
  27. XANAX [Concomitant]
     Indication: NERVOUSNESS
  28. ADVAIR DISKUS 100/50 [Concomitant]
     Indication: CHRONIC OBSTRUCTIVE PULMONARY DISEASE
     Dosage: 1 DF =500/50 UNIT NOT MENTIONED
  29. ALBUTEROL SULFATE AUTOHALER [Concomitant]

REACTIONS (3)
  - ANAPHYLACTIC REACTION [None]
  - MULTI-ORGAN FAILURE [None]
  - CARDIAC ARREST [None]
